FAERS Safety Report 13642869 (Version 2)
Quarter: 2018Q1

REPORT INFORMATION
  Report Type: Spontaneous
  Country: DE (occurrence: DE)
  Receive Date: 20170612
  Receipt Date: 20180302
  Transmission Date: 20180508
  Serious: Yes (Hospitalization)
  Sender: FDA-Public Use
  Company Number: DE-TEVA-774547GER

PATIENT
  Age: 52 Year
  Sex: Female
  Weight: 76 kg

DRUGS (3)
  1. L-THYROXIN [Concomitant]
     Active Substance: LEVOTHYROXINE SODIUM
     Dosage: FOR A LONG TIME
     Route: 048
  2. SERTRALINE [Suspect]
     Active Substance: SERTRALINE HYDROCHLORIDE
     Dosage: 100 - 50 MG
     Route: 048
     Dates: start: 20100401, end: 20170123
  3. PANTOZOL [Concomitant]
     Active Substance: PANTOPRAZOLE SODIUM
     Route: 048
     Dates: start: 20161001

REACTIONS (2)
  - Interstitial lung disease [Unknown]
  - Pulmonary fibrosis [Unknown]

NARRATIVE: CASE EVENT DATE: 20161001
